FAERS Safety Report 6440635-8 (Version None)
Quarter: 2009Q4

REPORT INFORMATION
  Report Type: 
  Country: None (occurrence: None)
  Receive Date: 20091116
  Receipt Date: 20091102
  Transmission Date: 20100525
  Serious: Yes (Hospitalization, Other)
  Sender: FDA-Public Use
  Company Number: PHHY2009FR48083

PATIENT
  Sex: Female

DRUGS (1)
  1. VALSARTAN AND HYDROCHLOROTHIAZIDE [Suspect]
     Indication: HYPERTENSION
     Dosage: 80/12.5 MG
     Route: 048
     Dates: end: 20091006

REACTIONS (11)
  - DERMATITIS BULLOUS [None]
  - ECZEMA [None]
  - EOSINOPHIL COUNT INCREASED [None]
  - ERYTHROSIS [None]
  - EXCORIATION [None]
  - FEELING HOT [None]
  - OEDEMA [None]
  - PAIN [None]
  - PHOTOSENSITIVITY REACTION [None]
  - PRURITUS [None]
  - SKIN LESION [None]
